FAERS Safety Report 15163177 (Version 1)
Quarter: 2018Q3

REPORT INFORMATION
  Report Type: Report from Study
  Country: US (occurrence: US)
  Receive Date: 20180718
  Receipt Date: 20180718
  Transmission Date: 20181010
  Serious: No
  Sender: FDA-Public Use
  Company Number: US-AMGEN-USASP2014022339

PATIENT
  Age: 22 Year
  Sex: Male

DRUGS (2)
  1. ENBREL [Suspect]
     Active Substance: ETANERCEPT
     Indication: ANKYLOSING SPONDYLITIS
     Dosage: 50 MG, QWK
     Route: 058
     Dates: start: 20131122, end: 20140123
  2. TYLENOL EXTRA STRENGTH [Concomitant]
     Active Substance: ACETAMINOPHEN
     Dosage: UNK UNK, TID, 1 TABLET, PRN
     Route: 048

REACTIONS (7)
  - HLA marker study positive [Unknown]
  - Sacroiliitis [Unknown]
  - Ankylosing spondylitis [Unknown]
  - Paraesthesia [Recovered/Resolved]
  - Tremor [Recovered/Resolved]
  - Anal fissure [Unknown]
  - Back pain [Recovered/Resolved]

NARRATIVE: CASE EVENT DATE: 201401
